FAERS Safety Report 23068562 (Version 1)
Quarter: 2023Q4

REPORT INFORMATION
  Report Type: Spontaneous
  Country: US (occurrence: None)
  Receive Date: 20231014
  Receipt Date: 20231014
  Transmission Date: 20240109
  Serious: Yes (Hospitalization, Disabling, Other)
  Sender: FDA-Public Use
  Company Number: None

PATIENT
  Age: 81 Year
  Sex: Female
  Weight: 57.6 kg

DRUGS (1)
  1. EYLEA [Suspect]
     Active Substance: AFLIBERCEPT
     Indication: Diabetic retinal oedema
     Dates: start: 20230706, end: 20230831

REACTIONS (5)
  - Hypoaesthesia [None]
  - Hypoaesthesia oral [None]
  - Dizziness [None]
  - Cerebrovascular accident [None]
  - Dry age-related macular degeneration [None]

NARRATIVE: CASE EVENT DATE: 20230706
